FAERS Safety Report 16326844 (Version 1)
Quarter: 2019Q2

REPORT INFORMATION
  Report Type: Spontaneous
  Country: US (occurrence: US)
  Receive Date: 20190517
  Receipt Date: 20190517
  Transmission Date: 20190711
  Serious: Yes (Other)
  Sender: FDA-Public Use
  Company Number: US-PFIZER INC-2019204874

PATIENT
  Age: 51 Year
  Sex: Female

DRUGS (1)
  1. LYRICA [Suspect]
     Active Substance: PREGABALIN
     Indication: NERVE INJURY
     Dosage: 300 MG, DAILY (TWO 75 MG IN THE MORNING AND TWO 75 MG IN THE NIGHT)
     Route: 048

REACTIONS (6)
  - Eating disorder [Unknown]
  - Weight fluctuation [Unknown]
  - Gallbladder disorder [Unknown]
  - Lower limb fracture [Unknown]
  - Accident [Unknown]
  - Weight decreased [Unknown]
